FAERS Safety Report 6174998-8 (Version None)
Quarter: 2009Q2

REPORT INFORMATION
  Report Type: 
  Country: None (occurrence: None)
  Receive Date: 20090430
  Receipt Date: 20081111
  Transmission Date: 20091009
  Serious: No
  Sender: FDA-Public Use
  Company Number: US-ASTRAZENECA-2008UW25283

PATIENT
  Age: 78 Year
  Sex: Male

DRUGS (7)
  1. NEXIUM [Suspect]
     Indication: GASTROOESOPHAGEAL REFLUX DISEASE
     Route: 048
  2. NEXIUM [Suspect]
     Route: 048
  3. LIPITOR [Concomitant]
  4. GENERIC XANAX [Concomitant]
  5. ISORDIL [Concomitant]
  6. METOPROLOL TARTRATE [Concomitant]
  7. DILTIAZEM [Concomitant]

REACTIONS (4)
  - CHEST PAIN [None]
  - CONSTIPATION [None]
  - DYSPNOEA [None]
  - GASTRIC DISORDER [None]
